FAERS Safety Report 5324979-9 (Version None)
Quarter: 2007Q2

REPORT INFORMATION
  Report Type: 
  Country: None (occurrence: None)
  Receive Date: 20070509
  Receipt Date: 20070427
  Transmission Date: 20071010
  Serious: Yes (Hospitalization, Disabling, Other)
  Sender: FDA-Public Use
  Company Number: 163-21880-07021328

PATIENT
  Age: 57 Year
  Sex: Male
  Weight: 66.2252 kg

DRUGS (16)
  1. REVLIMID [Suspect]
     Indication: MULTIPLE MYELOMA
     Dosage: SEE IMAGE
     Route: 048
     Dates: start: 20070101
  2. REVLIMID [Suspect]
     Indication: MULTIPLE MYELOMA
     Dosage: SEE IMAGE
     Route: 048
     Dates: start: 20070203
  3. DEXAMETHASONE TAB [Concomitant]
  4. VELCADE [Concomitant]
  5. CELEXA [Concomitant]
  6. PREDNISONE TAB [Concomitant]
  7. LEVAQUIN [Concomitant]
  8. VITAMIN B6 [Concomitant]
  9. ZOMETA [Concomitant]
  10. DECADRON [Concomitant]
  11. MALARON (MALARONE) [Concomitant]
  12. 1% PREDNISOLONE ACETATE (PREDNISOLONE ACETATE) (EYE DROPS) [Concomitant]
  13. ACULAR (KETOROLAC TROMETHAMINE) (EYE DROPS) [Concomitant]
  14. ZYMAR (GATIFLOXACIN) (EYE DROPS) [Concomitant]
  15. FENTANYL (FENTANYL) (POULTICE OR PATCH) [Concomitant]
  16. OXYCODONE HCL [Concomitant]

REACTIONS (4)
  - ANAEMIA [None]
  - PERIORBITAL DISORDER [None]
  - RETINAL DETACHMENT [None]
  - THROMBOCYTOPENIA [None]
